FAERS Safety Report 14499117 (Version 1)
Quarter: 2018Q1

REPORT INFORMATION
  Report Type: Spontaneous
  Country: IT (occurrence: IT)
  Receive Date: 20180207
  Receipt Date: 20180207
  Transmission Date: 20180509
  Serious: Yes (Other)
  Sender: FDA-Public Use
  Company Number: IT-JAZZ-2017-IT-004397

PATIENT
  Age: 64 Year
  Sex: Female

DRUGS (3)
  1. PRIALT [Suspect]
     Active Substance: ZICONOTIDE ACETATE
     Indication: ANALGESIC THERAPY
     Dosage: 45?G
     Route: 037
     Dates: start: 20170222, end: 20170223
  2. MORPHINE [Suspect]
     Active Substance: MORPHINE
     Indication: ANALGESIC THERAPY
     Dosage: 3.33 MG, QH
     Route: 037
     Dates: start: 20170222, end: 20170223
  3. MORPHINE [Suspect]
     Active Substance: MORPHINE
     Dosage: 0.417 MG, QH
     Route: 037
     Dates: start: 20170222, end: 20170223

REACTIONS (4)
  - Accidental overdose [Unknown]
  - Nystagmus [Recovered/Resolved with Sequelae]
  - Device issue [Unknown]
  - Depressed level of consciousness [Recovered/Resolved with Sequelae]

NARRATIVE: CASE EVENT DATE: 20170223
